FAERS Safety Report 4527965-1 (Version None)
Quarter: 2004Q4

REPORT INFORMATION
  Report Type: 
  Country: None (occurrence: None)
  Receive Date: 20041123
  Receipt Date: 20031216
  Transmission Date: 20050328
  Serious: Yes (Other)
  Sender: FDA-Public Use
  Company Number: 2003125356

PATIENT
  Age: 39 Year
  Sex: Male
  Weight: 92.9874 kg

DRUGS (7)
  1. LIPITOR [Suspect]
     Indication: BLOOD CHOLESTEROL INCREASED
     Dates: start: 20030101, end: 20030101
  2. RISPERDAL [Concomitant]
  3. OBEROL (DEXAMFETAMINE SULFATE, AMFETAMINE SULFATE, DEXAMFETAMINE SACCH [Concomitant]
  4. VENLAFAXINE HCL [Concomitant]
  5. BUPROPION HYDROCHLORIDE [Concomitant]
  6. LORAZEPAM [Concomitant]
  7. LISINOPRIL [Concomitant]

REACTIONS (5)
  - ABNORMAL BEHAVIOUR [None]
  - AMNESIA [None]
  - BLOOD CREATINE PHOSPHOKINASE INCREASED [None]
  - MYALGIA [None]
  - PSYCHOTIC DISORDER [None]
